FAERS Safety Report 5887322-2 (Version None)
Quarter: 2008Q3

REPORT INFORMATION
  Report Type: 
  Country: None (occurrence: None)
  Receive Date: 20080915
  Receipt Date: 20080903
  Transmission Date: 20090109
  Serious: Yes (Death)
  Sender: FDA-Public Use
  Company Number: 2008AL005348

PATIENT
  Age: 74 Year
  Sex: Male
  Weight: 67.1324 kg

DRUGS (6)
  1. DIGOXIN [Suspect]
     Indication: ARRHYTHMIA
     Dosage: 0.125MG DAILY PO
     Route: 048
     Dates: start: 20070901, end: 20080121
  2. DIGOXIN [Suspect]
     Indication: ARRHYTHMIA
     Dosage: 0.25MG DAILY PO
     Route: 048
     Dates: start: 20070901, end: 20080121
  3. PRILOSEC [Concomitant]
  4. CARDIAZEM [Concomitant]
  5. SOTALOL [Concomitant]
  6. PREDNISONE [Concomitant]

REACTIONS (3)
  - HEPATITIS [None]
  - JAUNDICE [None]
  - NAUSEA [None]
